FAERS Safety Report 9091792 (Version 2)
Quarter: 2013Q4

REPORT INFORMATION
  Report Type: Report from Study
  Country: US (occurrence: US)
  Receive Date: 20130131
  Receipt Date: 20131126
  Transmission Date: 20140711
  Serious: Yes (Hospitalization)
  Sender: FDA-Public Use
  Company Number: US-ROCHE-1183624

PATIENT
  Age: 58 Year
  Sex: Male
  Weight: 87.62 kg

DRUGS (7)
  1. AVASTIN [Suspect]
     Indication: COLORECTAL CANCER METASTATIC
     Route: 042
     Dates: start: 20120901, end: 20121101
  2. OXALIPLATIN [Concomitant]
     Route: 065
     Dates: start: 20120917
  3. LEUCOVORIN [Concomitant]
     Route: 065
     Dates: start: 20120917
  4. 5-FU [Concomitant]
     Route: 065
     Dates: start: 20120917
  5. EMEND [Concomitant]
     Route: 065
     Dates: start: 20120917
  6. ALOXI [Concomitant]
  7. DEXAMETHASONE [Concomitant]
     Route: 065
     Dates: start: 20120917

REACTIONS (5)
  - Abdominal wall neoplasm [Recovering/Resolving]
  - Post procedural infection [Recovering/Resolving]
  - Infection [Not Recovered/Not Resolved]
  - Hepatic embolisation [Recovered/Resolved]
  - Chest pain [Recovered/Resolved]
